FAERS Safety Report 13439114 (Version 1)
Quarter: 2017Q2

REPORT INFORMATION
  Report Type: Spontaneous
  Country: US (occurrence: US)
  Receive Date: 20170413
  Receipt Date: 20170413
  Transmission Date: 20170830
  Serious: No
  Sender: FDA-Public Use
  Company Number: US-ROCHE-742301

PATIENT
  Age: 90 Year
  Sex: Female

DRUGS (1)
  1. ROCEPHIN [Suspect]
     Active Substance: CEFTRIAXONE SODIUM
     Indication: ENDOCARDITIS
     Route: 065

REACTIONS (3)
  - Restlessness [Unknown]
  - Insomnia [Unknown]
  - Dyspnoea [Unknown]
